FAERS Safety Report 18695624 (Version 1)
Quarter: 2021Q1

REPORT INFORMATION
  Report Type: Spontaneous
  Country: GB (occurrence: GB)
  Receive Date: 20210104
  Receipt Date: 20210104
  Transmission Date: 20210419
  Serious: Yes (Other)
  Sender: FDA-Public Use
  Company Number: GB-TORRENT-00024678

PATIENT
  Age: 27 Year
  Sex: Male
  Weight: 63 kg

DRUGS (4)
  1. ARIPIPRAZOLE. [Suspect]
     Active Substance: ARIPIPRAZOLE
     Indication: PSYCHOTIC DISORDER
     Dosage: UNKNOWN
     Route: 048
     Dates: start: 201912
  2. TETRABENAZINE. [Suspect]
     Active Substance: TETRABENAZINE
     Indication: EXTRAPYRAMIDAL DISORDER
     Dosage: UNKNOWN
     Route: 048
     Dates: start: 202004, end: 20201127
  3. VITAMIN D [Concomitant]
     Active Substance: VITAMIN D NOS
     Indication: PRODUCT USED FOR UNKNOWN INDICATION
     Dosage: UNKNOWN
  4. FLUOXETINE [Suspect]
     Active Substance: FLUOXETINE HYDROCHLORIDE
     Indication: DEPRESSION
     Dosage: UNKNOWN
     Route: 048
     Dates: start: 201911

REACTIONS (8)
  - Tardive dyskinesia [Not Recovered/Not Resolved]
  - Extrapyramidal disorder [Recovering/Resolving]
  - Vision blurred [Not Recovered/Not Resolved]
  - Somnolence [Unknown]
  - Visual acuity reduced [Not Recovered/Not Resolved]
  - Labelled drug-drug interaction medication error [Unknown]
  - Hypersomnia [Unknown]
  - Restlessness [Unknown]

NARRATIVE: CASE EVENT DATE: 202006
